FAERS Safety Report 8321104-7 (Version None)
Quarter: 2012Q2

REPORT INFORMATION
  Report Type: 
  Country: None (occurrence: None)
  Receive Date: 20120430
  Receipt Date: 20120420
  Transmission Date: 20120825
  Serious: Yes (Other)
  Sender: FDA-Public Use
  Company Number: US-JNJFOC-20120410311

PATIENT
  Sex: Female
  Weight: 77.11 kg

DRUGS (7)
  1. CALCIUM CARBONATE [Concomitant]
     Indication: ABDOMINAL DISCOMFORT
     Route: 048
  2. AMIODARONE HCL [Concomitant]
     Indication: ATRIAL FIBRILLATION
     Route: 048
     Dates: start: 20120215
  3. SIMVASTATIN [Concomitant]
     Indication: BLOOD CHOLESTEROL
     Route: 048
     Dates: start: 20070101
  4. PREVACID [Concomitant]
     Indication: GASTROOESOPHAGEAL REFLUX DISEASE
     Route: 048
     Dates: start: 20110101
  5. SYNTHROID [Concomitant]
     Indication: THYROID DISORDER
     Route: 048
  6. XARELTO [Suspect]
     Indication: ATRIAL FIBRILLATION
     Route: 048
     Dates: start: 20120215
  7. METOPROLOL TARTRATE [Concomitant]
     Indication: ATRIAL FIBRILLATION
     Route: 048
     Dates: start: 20120215

REACTIONS (4)
  - ABDOMINAL DISCOMFORT [None]
  - FEELING ABNORMAL [None]
  - DECREASED APPETITE [None]
  - LARYNGITIS [None]
